FAERS Safety Report 16403375 (Version 1)
Quarter: 2019Q2

REPORT INFORMATION
  Report Type: Spontaneous
  Country: US (occurrence: US)
  Receive Date: 20190501
  Receipt Date: 20190501
  Transmission Date: 20190711
  Serious: No
  Sender: FDA-Public Use
  Company Number: None

PATIENT
  Age: 58 Year
  Sex: Male

DRUGS (1)
  1. VOTRIENT [Suspect]
     Active Substance: PAZOPANIB HYDROCHLORIDE
     Indication: RENAL CANCER
     Route: 048
     Dates: start: 20190314

REACTIONS (4)
  - Stomatitis [None]
  - Diarrhoea [None]
  - Drug intolerance [None]
  - Mucosal inflammation [None]

NARRATIVE: CASE EVENT DATE: 20190501
